FAERS Safety Report 4556602-5 (Version None)
Quarter: 2005Q1

REPORT INFORMATION
  Report Type: 
  Country: None (occurrence: None)
  Receive Date: 20050114
  Receipt Date: 20050106
  Transmission Date: 20050727
  Serious: Yes (Hospitalization)
  Sender: FDA-Public Use
  Company Number: 211406

PATIENT
  Age: 73 Year
  Sex: Female
  Weight: 51.5 kg

DRUGS (14)
  1. AVASTIN [Suspect]
     Indication: COLORECTAL CANCER METASTATIC
     Dosage: 269 MG, Q2W, INTRAVENOUS
     Route: 042
     Dates: start: 20040101
  2. OXALIPLATIN [Suspect]
     Indication: COLORECTAL CANCER METASTATIC
     Dosage: 134 MG, INTRAVENOUS
     Route: 042
  3. FLUOROURACIL [Suspect]
     Indication: COLORECTAL CANCER METASTATIC
     Dosage: SEE IMAGE
  4. LEUCOVORIN CALCIUM [Suspect]
     Indication: COLORECTAL CANCER METASTATIC
     Dosage: 628 MG, INTRAVENOUS
     Route: 042
  5. SKELAXIN [Concomitant]
  6. PYRIDIUM (PHENAZOPYRIDINE HYDROCHLORIDE) [Concomitant]
  7. PREVACID [Concomitant]
  8. PERCOCET [Concomitant]
  9. MEGACE [Concomitant]
  10. MACRODANTIN [Concomitant]
  11. K-DUR 10 [Concomitant]
  12. DARVOCET-N 100 [Concomitant]
  13. COMPAZINE [Concomitant]
  14. ANTIVERTIGO AGENT NOS (ANTIVERTIGO AGENT NOS) [Concomitant]

REACTIONS (17)
  - ABDOMINAL PAIN [None]
  - ACTIVATED PARTIAL THROMBOPLASTIN TIME PROLONGED [None]
  - DEEP VEIN THROMBOSIS [None]
  - DRUG INTOLERANCE [None]
  - HAEMATOCRIT DECREASED [None]
  - HAEMOGLOBIN DECREASED [None]
  - HYPOKALAEMIA [None]
  - INTERNATIONAL NORMALISED RATIO DECREASED [None]
  - INTERNATIONAL NORMALISED RATIO INCREASED [None]
  - LUNG INFILTRATION [None]
  - NAUSEA [None]
  - NEUTROPENIA [None]
  - ORAL INTAKE REDUCED [None]
  - PROTHROMBIN TIME PROLONGED [None]
  - PULMONARY EMBOLISM [None]
  - PYREXIA [None]
  - VOMITING [None]
